FAERS Safety Report 17451086 (Version 1)
Quarter: 2020Q1

REPORT INFORMATION
  Report Type: Spontaneous
  Country: US (occurrence: US)
  Receive Date: 20200224
  Receipt Date: 20200224
  Transmission Date: 20200409
  Serious: Yes (Other)
  Sender: FDA-Public Use
  Company Number: US-PFIZER INC-2020074235

PATIENT
  Age: 57 Year
  Sex: Female
  Weight: 118.8 kg

DRUGS (3)
  1. NALBUPHINE HYDROCHLORIDE. [Suspect]
     Active Substance: NALBUPHINE HYDROCHLORIDE
     Indication: INTERVERTEBRAL DISC PROTRUSION
     Dosage: 1 ML, UNK (EVERY 3-6 HOURS INJECTION)
  2. NALBUPHINE HYDROCHLORIDE. [Suspect]
     Active Substance: NALBUPHINE HYDROCHLORIDE
     Indication: MIGRAINE
     Dosage: UNK
  3. NALBUPHINE HYDROCHLORIDE. [Suspect]
     Active Substance: NALBUPHINE HYDROCHLORIDE
     Indication: PATELLA FRACTURE

REACTIONS (2)
  - Blindness unilateral [Unknown]
  - Feeling abnormal [Unknown]
